FAERS Safety Report 8975142 (Version 1)
Quarter: 2012Q4

REPORT INFORMATION
  Report Type: 
  Country: US (occurrence: US)
  Receive Date: 20121219
  Receipt Date: 20121219
  Transmission Date: 20130627
  Serious: No
  Sender: FDA-Public Use
  Company Number: US-AMGEN-USASP2012066969

PATIENT
  Age: 77 Year
  Sex: Female
  Weight: 43.99 kg

DRUGS (6)
  1. PROLIA [Suspect]
     Indication: OSTEOPOROSIS POSTMENOPAUSAL
     Dosage: 60 mg, one time dose
     Route: 058
     Dates: start: 20120523, end: 20120523
  2. ATENOLOL [Concomitant]
     Indication: BLOOD PRESSURE
     Dosage: UNK UNK, qd
     Route: 048
  3. VITAMIN D [Concomitant]
     Dosage: UNK UNK, qd
  4. MULTIVITAMIN [Concomitant]
     Dosage: UNK
  5. ANALPRAM E [Concomitant]
     Indication: SKIN INFECTION
     Dosage: 2.5 %, prn
     Route: 061
  6. MUPIROCIN [Concomitant]
     Indication: SKIN INFECTION
     Dosage: 2 %, prn

REACTIONS (2)
  - Pyrexia [Recovered/Resolved]
  - Hypothyroidism [Unknown]
